FAERS Safety Report 8757880 (Version 2)
Quarter: 2012Q4

REPORT INFORMATION
  Report Type: 
  Country: US (occurrence: US)
  Receive Date: 20120828
  Receipt Date: 20121129
  Transmission Date: 20130627
  Serious: Yes (Life-Threatening, Hospitalization, Disabling)
  Sender: FDA-Public Use
  Company Number: US-009507513-1208USA003942

PATIENT
  Age: 68 None
  Sex: Male
  Weight: 81.63 kg

DRUGS (5)
  1. VICTRELIS [Suspect]
     Indication: HEPATITIS C
     Dosage: 800 mg, tid
     Route: 048
     Dates: start: 20120910
  2. OMEGA-3 MARINE TRIGLYCERIDES [Concomitant]
  3. VITAMINS (UNSPECIFIED) [Concomitant]
  4. RIBAPAK [Suspect]
  5. PEGASYS [Suspect]

REACTIONS (22)
  - Respiratory arrest [Recovered/Resolved]
  - Sepsis [Recovered/Resolved]
  - Renal failure acute [Recovered/Resolved]
  - Renal tubular necrosis [Recovered/Resolved]
  - Hypotension [Recovered/Resolved]
  - Septic shock [Recovered/Resolved]
  - Cholecystitis [Recovered/Resolved]
  - Pyelonephritis [Recovered/Resolved]
  - Ureterolithotomy [Recovered/Resolved]
  - Respiratory failure [Recovered/Resolved]
  - Adrenal insufficiency [Recovered/Resolved]
  - Dysphagia [Recovered/Resolved]
  - Peroneal nerve palsy [Recovered/Resolved]
  - Clostridium difficile colitis [Recovered/Resolved]
  - Atrial fibrillation [Recovered/Resolved]
  - Hyponatraemia [Recovered/Resolved]
  - Pancytopenia [Recovered/Resolved]
  - Thirst [Not Recovered/Not Resolved]
  - Muscular weakness [Not Recovered/Not Resolved]
  - Pain [Not Recovered/Not Resolved]
  - Pollakiuria [Not Recovered/Not Resolved]
  - Dry mouth [Not Recovered/Not Resolved]
